FAERS Safety Report 26002953 (Version 1)
Quarter: 2025Q4

REPORT INFORMATION
  Report Type: Spontaneous
  Country: US (occurrence: US)
  Receive Date: 20251106
  Receipt Date: 20251106
  Transmission Date: 20260118
  Serious: No
  Sender: SANOFI AVENTIS
  Company Number: US-SA-2025SA319886

PATIENT
  Age: 46 Year
  Sex: Male

DRUGS (6)
  1. ELOCTATE [Suspect]
     Active Substance: EFMOROCTOCOG ALFA
     Indication: Factor VIII deficiency
     Dosage: 2000 U, PRN
     Route: 042
     Dates: start: 202502
  2. ELOCTATE [Suspect]
     Active Substance: EFMOROCTOCOG ALFA
     Indication: Factor VIII deficiency
     Dosage: 2000 U, PRN
     Route: 042
     Dates: start: 202502
  3. ELOCTATE [Suspect]
     Active Substance: EFMOROCTOCOG ALFA
     Dosage: 750 U, PRN
     Route: 042
     Dates: start: 202502
  4. ELOCTATE [Suspect]
     Active Substance: EFMOROCTOCOG ALFA
     Dosage: 750 U, PRN
     Route: 042
     Dates: start: 202502
  5. ELOCTATE [Suspect]
     Active Substance: EFMOROCTOCOG ALFA
     Dosage: 2985 U (2687-3283) SLOW IV PUSH EVERY 24 HOURS AFTER RENAL BIOPSY PROCEDURE FOR 3 DAYS
     Route: 042
  6. ELOCTATE [Suspect]
     Active Substance: EFMOROCTOCOG ALFA
     Dosage: 2985 U (2687-3283) SLOW IV PUSH EVERY 24 HOURS AFTER RENAL BIOPSY PROCEDURE FOR 3 DAYS
     Route: 042

REACTIONS (1)
  - Illness [Unknown]

NARRATIVE: CASE EVENT DATE: 20251001
